FAERS Safety Report 15648493 (Version 1)
Quarter: 2018Q4

REPORT INFORMATION
  Report Type: Spontaneous
  Country: US (occurrence: US)
  Receive Date: 20181122
  Receipt Date: 20181122
  Transmission Date: 20190205
  Serious: Yes (Hospitalization, Other)
  Sender: FDA-Public Use
  Company Number: US-PFIZER INC-2018477125

PATIENT
  Age: 23 Year
  Sex: Male

DRUGS (16)
  1. QUETIAPINE. [Concomitant]
     Active Substance: QUETIAPINE
     Indication: ANXIETY
     Dosage: 200 MG, 1X/DAY (EACH EVENING)
     Route: 048
  2. LEVOFLOXACIN. [Concomitant]
     Active Substance: LEVOFLOXACIN
     Indication: PROPHYLAXIS
     Dosage: UNK
  3. METHADONE [Concomitant]
     Active Substance: METHADONE HYDROCHLORIDE
     Dosage: 85 MG, DAILY (METHADONE DOSAGE WAS INCREASED TO 85 MG DAILY)
  4. VORICONAZOLE. [Concomitant]
     Active Substance: VORICONAZOLE
     Indication: PROPHYLAXIS
     Dosage: 300 MG, 2X/DAY
     Route: 048
  5. VANCOMYCIN HYDROCHLORIDE. [Concomitant]
     Active Substance: VANCOMYCIN HYDROCHLORIDE
     Indication: PYREXIA
     Dosage: UNK
  6. AZTREONAM. [Concomitant]
     Active Substance: AZTREONAM
     Indication: PYREXIA
     Dosage: UNK
  7. FLUOXETINE [Concomitant]
     Active Substance: FLUOXETINE HYDROCHLORIDE
     Indication: AFFECTIVE DISORDER
     Dosage: 60 MG, 1X/DAY
     Route: 048
  8. FLUOXETINE [Concomitant]
     Active Substance: FLUOXETINE HYDROCHLORIDE
     Dosage: 80 MG, DAILY (INCREASE IN HIS FL UOXETINE DOSAGE TO 80 MG DAILY)
  9. LORAZEPAM. [Concomitant]
     Active Substance: LORAZEPAM
     Dosage: 2 MG, 2X/DAY (WITH 1-MG ORAL DOSES AVAILABLE AS NEEDED EVERY 4 HOURS)
     Route: 048
  10. ACYCLOVIR SODIUM. [Concomitant]
     Active Substance: ACYCLOVIR SODIUM
     Indication: PROPHYLAXIS
     Dosage: UNK
  11. AMPHOTERICIN B. [Concomitant]
     Active Substance: AMPHOTERICIN B
     Indication: PYREXIA
     Dosage: UNK (ONE DOSE)
  12. CYTARABINE. [Suspect]
     Active Substance: CYTARABINE
     Indication: CHEMOTHERAPY
  13. NICOTINE. [Concomitant]
     Active Substance: NICOTINE
     Dosage: 21 MG, DAILY (21 MG CHANGED DAILY)
     Route: 062
  14. CYTARABINE. [Suspect]
     Active Substance: CYTARABINE
     Indication: ACUTE MYELOID LEUKAEMIA
     Dosage: UNK, 2X/DAY (HIGH-DOSE, 2 G/M2 GIVEN EVERY 12 HOURS FOR EIGHT DOSES)
     Route: 042
  15. METHADONE [Concomitant]
     Active Substance: METHADONE HYDROCHLORIDE
     Dosage: 75 MG, 1X/DAY
     Route: 048
  16. QUETIAPINE. [Concomitant]
     Active Substance: QUETIAPINE
     Dosage: 12.5 MG, EVERY 4 HRS

REACTIONS (4)
  - Thrombocytopenia [Unknown]
  - Mucosal inflammation [Unknown]
  - Neutropenia [Unknown]
  - Anaemia [Unknown]
